FAERS Safety Report 7311197-8 (Version None)
Quarter: 2011Q1

REPORT INFORMATION
  Report Type: 
  Country: None (occurrence: None)
  Receive Date: 20110224
  Receipt Date: 20110218
  Transmission Date: 20110831
  Serious: Yes (Hospitalization)
  Sender: FDA-Public Use
  Company Number: DE-ROCHE-761011

PATIENT
  Sex: Female
  Weight: 83 kg

DRUGS (4)
  1. BEVACIZUMAB [Suspect]
     Dosage: FREQUENCY: Q 21, DATE OF LAST DOSE PRIOR TO SAE: 10 FEB 2011.
     Route: 042
     Dates: start: 20100701
  2. PACLITAXEL [Suspect]
     Dosage: FREQUENCY: Q 7, DATE OF LAST DOSE PRIOR TO SAE: 10 FEB 2011.
     Route: 042
     Dates: start: 20100701
  3. RABEPRAZOLE SODIUM [Concomitant]
  4. BLOPRESS [Concomitant]

REACTIONS (1)
  - ATRIAL FIBRILLATION [None]
